FAERS Safety Report 7092816-0 (Version None)
Quarter: 2010Q4

REPORT INFORMATION
  Report Type: 
  Country: None (occurrence: None)
  Receive Date: 20101110
  Receipt Date: 20101028
  Transmission Date: 20110411
  Serious: Yes (Other)
  Sender: FDA-Public Use
  Company Number: US-PFIZER INC-2010137746

PATIENT
  Sex: Male
  Weight: 79.4 kg

DRUGS (3)
  1. LYRICA [Suspect]
     Indication: NEUROPATHY PERIPHERAL
     Dosage: 300 MG, 3X/DAY
  2. ACETAMINOPHEN [Suspect]
     Indication: PAIN
     Dosage: UNK
     Dates: end: 20090101
  3. HYDROCODONE BITARTRATE [Suspect]
     Indication: PAIN
     Dosage: 5 MG, 1X/DAY
     Dates: start: 20100101

REACTIONS (6)
  - DRUG INEFFECTIVE [None]
  - HEART RATE INCREASED [None]
  - HYPERHIDROSIS [None]
  - PAIN IN EXTREMITY [None]
  - VISUAL ACUITY REDUCED [None]
  - VITAMIN B12 DEFICIENCY [None]
